FAERS Safety Report 25607781 (Version 2)
Quarter: 2025Q3

REPORT INFORMATION
  Report Type: Spontaneous
  Country: US (occurrence: US)
  Receive Date: 20250725
  Receipt Date: 20250925
  Transmission Date: 20251020
  Serious: No
  Sender: Kenvue
  Company Number: US-KENVUE-20250703266

PATIENT
  Age: 66 Year
  Sex: Female

DRUGS (2)
  1. WOMENS ROGAINE [Suspect]
     Active Substance: MINOXIDIL
     Indication: Alopecia
     Dosage: AMOUNT TILL LINE ON THE DROPPER,  TWICE A DAY
     Route: 061
     Dates: start: 1995
  2. WOMENS ROGAINE [Suspect]
     Active Substance: MINOXIDIL
     Dosage: 1 MILLILITER, TWICE A DAY
     Route: 061
     Dates: end: 20250811

REACTIONS (1)
  - Alopecia [Recovering/Resolving]

NARRATIVE: CASE EVENT DATE: 20250501
